FAERS Safety Report 25245969 (Version 1)
Quarter: 2025Q2

REPORT INFORMATION
  Report Type: Spontaneous
  Country: US (occurrence: None)
  Receive Date: 20250428
  Receipt Date: 20250428
  Transmission Date: 20250716
  Serious: No
  Sender: FDA-CTU
  Company Number: None

PATIENT
  Age: 76 Year
  Sex: Female
  Weight: 89.1 kg

DRUGS (9)
  1. XDEMVY [Suspect]
     Active Substance: LOTILANER
     Indication: Ocular demodicosis
     Dosage: 1 DROP(S) TWICE A DAY  OPHTHALMIC
     Route: 047
     Dates: start: 20250427, end: 20250427
  2. LOSARTAN [Suspect]
     Active Substance: LOSARTAN
  3. MESALAMINE [Concomitant]
     Active Substance: MESALAMINE
  4. METAMUCIL [Concomitant]
     Active Substance: PLANTAGO SEED
  5. Viactiv chewable [Concomitant]
  6. Caltrate chewable (Calcium plus Vitamind D/K) [Concomitant]
  7. Digestive Advantage Intense Bowel Support (Probiotic) [Concomitant]
  8. Naturewise Hair, Skin, and Naills (5,000 mcg Biotin plus other vitamin [Concomitant]
  9. Zahler Magnesium Citrate [Concomitant]

REACTIONS (7)
  - Throat irritation [None]
  - Sinus disorder [None]
  - Oral discomfort [None]
  - Burn oesophageal [None]
  - Rhinorrhoea [None]
  - Nausea [None]
  - Body temperature increased [None]

NARRATIVE: CASE EVENT DATE: 20250427
